FAERS Safety Report 25763871 (Version 1)
Quarter: 2025Q3

REPORT INFORMATION
  Report Type: Spontaneous
  Country: US (occurrence: US)
  Receive Date: 20250905
  Receipt Date: 20250905
  Transmission Date: 20251020
  Serious: No
  Sender: DOMPE FARMACEUTICI
  Company Number: US-FARMAPROD-202412-4112

PATIENT
  Age: 50 Year
  Sex: Female
  Weight: 59.96 kg

DRUGS (9)
  1. OXERVATE [Suspect]
     Active Substance: CENEGERMIN-BKBJ
     Indication: Neurotrophic keratopathy
     Route: 047
     Dates: start: 20241125, end: 20250113
  2. OXERVATE [Suspect]
     Active Substance: CENEGERMIN-BKBJ
     Dates: start: 20250306
  3. LOTEMAX [Concomitant]
     Active Substance: LOTEPREDNOL ETABONATE
  4. VEVYE [Concomitant]
     Active Substance: CYCLOSPORINE
  5. TOPIRAMATE [Concomitant]
     Active Substance: TOPIRAMATE
  6. ALBUTEROL SULFATE [Concomitant]
     Active Substance: ALBUTEROL SULFATE
  7. FLAXSEED [Concomitant]
     Active Substance: FLAX SEED
  8. SPIRONOLACTONE [Concomitant]
     Active Substance: SPIRONOLACTONE
  9. SUMATRIPTAN SUCCINATE [Concomitant]
     Active Substance: SUMATRIPTAN SUCCINATE

REACTIONS (3)
  - Epistaxis [Not Recovered/Not Resolved]
  - Nasal discomfort [Unknown]
  - Parosmia [Unknown]

NARRATIVE: CASE EVENT DATE: 20241126
